FAERS Safety Report 9336552 (Version 1)
Quarter: 2013Q2

REPORT INFORMATION
  Report Type: Spontaneous
  Country: US (occurrence: US)
  Receive Date: 20130607
  Receipt Date: 20130607
  Transmission Date: 20140414
  Serious: No
  Sender: FDA-Public Use
  Company Number: US-PFIZER INC-2013171790

PATIENT
  Sex: Male

DRUGS (2)
  1. LYRICA [Suspect]
     Indication: NEURALGIA
     Dosage: 3 CAPSULES OF 100 MG DAILY
     Route: 048
  2. LYRICA [Suspect]
     Dosage: 100 MG DAILY
     Route: 048

REACTIONS (5)
  - Dysarthria [Unknown]
  - Night sweats [Unknown]
  - Hot flush [Unknown]
  - Irritability [Unknown]
  - Agitation [Unknown]
